FAERS Safety Report 9800784 (Version 1)
Quarter: 2014Q1

REPORT INFORMATION
  Report Type: Spontaneous
  Country: US (occurrence: US)
  Receive Date: 20140107
  Receipt Date: 20140107
  Transmission Date: 20141002
  Serious: No
  Sender: FDA-Public Use
  Company Number: US-PFIZER INC-2014000326

PATIENT
  Age: 75 Year
  Sex: Female
  Weight: 65.76 kg

DRUGS (7)
  1. GABAPENTIN [Suspect]
     Indication: OSTEOARTHRITIS
     Dosage: 300 MG, 3X/DAY
  2. VICODIN [Suspect]
     Indication: PAIN
     Dosage: 500 MG, 2X/DAY
  3. VICODIN [Suspect]
     Indication: OSTEOARTHRITIS
  4. DICLOFENAC [Suspect]
     Indication: PAIN
     Dosage: 75 MG, 2X/DAY
  5. DICLOFENAC [Suspect]
     Indication: OSTEOARTHRITIS
  6. ZOCOR [Concomitant]
     Indication: BLOOD CHOLESTEROL
     Dosage: 40 MG, DAILY
  7. LISINOPRIL [Concomitant]
     Indication: BLOOD PRESSURE
     Dosage: 10 MG, DAILY
     Route: 048

REACTIONS (10)
  - Off label use [Unknown]
  - Visual impairment [Unknown]
  - Vision blurred [Unknown]
  - Viral infection [Unknown]
  - Lip swelling [Unknown]
  - Headache [Unknown]
  - Depression [Unknown]
  - Hot flush [Unknown]
  - Hypoaesthesia [Unknown]
  - Hypoaesthesia oral [Unknown]
